FAERS Safety Report 11106019 (Version 1)
Quarter: 2015Q2

REPORT INFORMATION
  Report Type: Spontaneous
  Country: US (occurrence: None)
  Receive Date: 20150511
  Receipt Date: 20150511
  Transmission Date: 20150821
  Serious: No
  Sender: FDA-Public Use
  Company Number: None

PATIENT
  Age: 41 Year
  Sex: Male
  Weight: 83.01 kg

DRUGS (8)
  1. PRAVASTATIN SODIUM. [Concomitant]
     Active Substance: PRAVASTATIN SODIUM
  2. LORATADINE (CLARITIN) [Concomitant]
  3. KETOCONAZOLE 2% [Concomitant]
     Active Substance: KETOCONAZOLE
  4. CYCLOSPORINE (RESTASIS) [Concomitant]
  5. FLUOCINOLONE ACETONIDE. [Concomitant]
     Active Substance: FLUOCINOLONE ACETONIDE
  6. TRIAMCINOLONE ACETONIDE. [Concomitant]
     Active Substance: TRIAMCINOLONE ACETONIDE
  7. NILOTINIB [Suspect]
     Active Substance: NILOTINIB
     Indication: CHRONIC MYELOID LEUKAEMIA
     Route: 048
     Dates: start: 20130928
  8. TASIGNA [Concomitant]
     Active Substance: NILOTINIB

REACTIONS (1)
  - Cataract [None]

NARRATIVE: CASE EVENT DATE: 20150507
